FAERS Safety Report 24108252 (Version 1)
Quarter: 2024Q3

REPORT INFORMATION
  Report Type: Spontaneous
  Country: US (occurrence: US)
  Receive Date: 20240718
  Receipt Date: 20240718
  Transmission Date: 20241016
  Serious: No
  Sender: JOHNSON AND JOHNSON
  Company Number: US-JNJFOC-20240740335

PATIENT
  Sex: Male

DRUGS (2)
  1. RISPERDAL [Suspect]
     Active Substance: RISPERIDONE
     Indication: Aggression
     Dosage: 0.25 MG AND 0.5 MG
     Route: 048
  2. RISPERDAL [Suspect]
     Active Substance: RISPERIDONE
     Indication: Anger

REACTIONS (3)
  - Weight increased [Unknown]
  - Sedation [Unknown]
  - Increased appetite [Unknown]
